FAERS Safety Report 13412920 (Version 1)
Quarter: 2017Q2

REPORT INFORMATION
  Report Type: Spontaneous
  Country: US (occurrence: US)
  Receive Date: 20170407
  Receipt Date: 20170407
  Transmission Date: 20170830
  Serious: No
  Sender: FDA-Public Use
  Company Number: US-BIOGEN-2017BI00381878

PATIENT
  Sex: Male

DRUGS (2)
  1. TECFIDERA [Suspect]
     Active Substance: DIMETHYL FUMARATE
     Indication: MULTIPLE SCLEROSIS
     Route: 065
     Dates: start: 20140325, end: 20140926
  2. TECFIDERA [Suspect]
     Active Substance: DIMETHYL FUMARATE
     Route: 065
     Dates: start: 20140319

REACTIONS (2)
  - Hyperhidrosis [Unknown]
  - Flushing [Unknown]
